FAERS Safety Report 6789060-0 (Version None)
Quarter: 2010Q2

REPORT INFORMATION
  Report Type: 
  Country: None (occurrence: None)
  Receive Date: 20100623
  Receipt Date: 20080805
  Transmission Date: 20101027
  Serious: Yes (Other)
  Sender: FDA-Public Use
  Company Number: US-PFIZER INC-2008051682

PATIENT
  Sex: Female

DRUGS (5)
  1. GEODON [Suspect]
     Indication: BIPOLAR DISORDER
  2. ANTIDEPRESSANTS [Concomitant]
  3. CYMBALTA [Concomitant]
  4. AMBIEN [Concomitant]
  5. XANAX [Concomitant]

REACTIONS (1)
  - DYSTONIA [None]
